FAERS Safety Report 7767223-5 (Version None)
Quarter: 2011Q3

REPORT INFORMATION
  Report Type: 
  Country: None (occurrence: None)
  Receive Date: 20110922
  Receipt Date: 20100820
  Transmission Date: 20111222
  Serious: No
  Sender: FDA-Public Use
  Company Number: US-ASTRAZENECA-2010SE39458

PATIENT
  Age: 54 Year
  Sex: Male
  Weight: 99.3 kg

DRUGS (5)
  1. SYMBICORT [Concomitant]
     Route: 055
  2. SEROQUEL [Suspect]
     Indication: POST-TRAUMATIC STRESS DISORDER
     Route: 048
     Dates: start: 20100101
  3. SEROQUEL [Suspect]
     Indication: DEPRESSION
     Route: 048
     Dates: start: 20100101
  4. SEROQUEL [Suspect]
     Route: 048
     Dates: start: 20100101
  5. SEROQUEL [Suspect]
     Route: 048
     Dates: start: 20100101

REACTIONS (5)
  - DRUG DOSE OMISSION [None]
  - DYSKINESIA [None]
  - WEIGHT INCREASED [None]
  - STRESS [None]
  - MUSCLE CONTRACTIONS INVOLUNTARY [None]
